FAERS Safety Report 8234067-X (Version None)
Quarter: 2012Q1

REPORT INFORMATION
  Report Type: 
  Country: None (occurrence: None)
  Receive Date: 20120326
  Receipt Date: 20120326
  Transmission Date: 20120608
  Serious: Yes (Hospitalization)
  Sender: FDA-Public Use
  Company Number: None

PATIENT
  Age: 72 Year
  Sex: Male
  Weight: 79.378 kg

DRUGS (2)
  1. FAMOTIDINE [Suspect]
     Indication: ENDOSCOPY ABNORMAL
     Dosage: 40MG
     Dates: start: 20110422, end: 20110612
  2. FAMOTIDINE [Suspect]
     Indication: ULCER
     Dosage: 40MG
     Dates: start: 20110422, end: 20110612

REACTIONS (6)
  - DIZZINESS [None]
  - FACE INJURY [None]
  - TOOTH LOSS [None]
  - LOSS OF CONSCIOUSNESS [None]
  - LACERATION [None]
  - JOINT INJURY [None]
